FAERS Safety Report 12266480 (Version 1)
Quarter: 2016Q2

REPORT INFORMATION
  Report Type: Spontaneous
  Country: US (occurrence: US)
  Receive Date: 20160414
  Receipt Date: 20160414
  Transmission Date: 20160815
  Serious: No
  Sender: FDA-Public Use
  Company Number: US-CIPLA LTD.-2015US03284

PATIENT

DRUGS (3)
  1. TYLENO [Concomitant]
     Dosage: 500 MG ONE TABLET OR 46 HOURS AS NEEDED
     Route: 065
  2. IRINOTECAN [Suspect]
     Active Substance: IRINOTECAN
     Indication: RECTAL CANCER
     Dosage: 160 MG/M2, ON EVERY 7TH DAY OF 28 DAYS CYCLE
     Route: 042
     Dates: start: 20141106, end: 20150416
  3. VICODIN [Concomitant]
     Active Substance: ACETAMINOPHEN\HYDROCODONE BITARTRATE
     Indication: PAIN
     Dosage: 5/325 MG ONE TABLET/6 HOURS FOR MILD PAIN
     Route: 065

REACTIONS (1)
  - Injection site irritation [Recovered/Resolved]

NARRATIVE: CASE EVENT DATE: 20150416
